FAERS Safety Report 4748881-6 (Version None)
Quarter: 2005Q3

REPORT INFORMATION
  Report Type: 
  Country: None (occurrence: None)
  Receive Date: 20050817
  Receipt Date: 20050808
  Transmission Date: 20060218
  Serious: Yes (Other)
  Sender: FDA-Public Use
  Company Number: 2005112704

PATIENT
  Age: 34 Year
  Sex: Female
  Weight: 79.3795 kg

DRUGS (3)
  1. ZOLOFT [Suspect]
     Indication: DEPRESSION
     Dosage: 100 MG, ORAL
     Route: 048
  2. PAXIL [Suspect]
     Indication: ILL-DEFINED DISORDER
  3. VALIUM [Concomitant]

REACTIONS (12)
  - DIZZINESS [None]
  - ECONOMIC PROBLEM [None]
  - FEELING JITTERY [None]
  - HEAD INJURY [None]
  - INSOMNIA [None]
  - MEMORY IMPAIRMENT [None]
  - MENTAL DISORDER [None]
  - NERVOUSNESS [None]
  - PARAESTHESIA [None]
  - PRURITUS [None]
  - ROAD TRAFFIC ACCIDENT [None]
  - TREMOR [None]
